FAERS Safety Report 9531113 (Version 1)
Quarter: 2013Q3

REPORT INFORMATION
  Report Type: Spontaneous
  Country: US (occurrence: None)
  Receive Date: 20130916
  Receipt Date: 20130916
  Transmission Date: 20140515
  Serious: Yes (Disabling)
  Sender: FDA-Public Use
  Company Number: None

PATIENT
  Age: 20 Year
  Sex: Female
  Weight: 70.31 kg

DRUGS (1)
  1. DEXTROAMP-AMPHET ER [Suspect]
     Dosage: 1 PILL; ONCE DAILY
     Route: 048
     Dates: start: 20130810, end: 20130910

REACTIONS (6)
  - Depression [None]
  - Feeling abnormal [None]
  - Irritability [None]
  - Product quality issue [None]
  - Product substitution issue [None]
  - Insomnia [None]
